FAERS Safety Report 15675696 (Version 2)
Quarter: 2019Q1

REPORT INFORMATION
  Report Type: Spontaneous
  Country: US (occurrence: US)
  Receive Date: 20181130
  Receipt Date: 20190110
  Transmission Date: 20190417
  Serious: Yes (Other)
  Sender: FDA-Public Use
  Company Number: US-BAYER-2018-219024

PATIENT
  Age: 33 Year
  Sex: Female
  Weight: 71.6 kg

DRUGS (5)
  1. MIRENA [Suspect]
     Active Substance: LEVONORGESTREL
     Indication: ENDOMETRIOSIS
  2. PLAN B [Concomitant]
     Active Substance: LEVONORGESTREL
     Indication: POST COITAL CONTRACEPTION
  3. MIRENA [Suspect]
     Active Substance: LEVONORGESTREL
     Indication: CONTRACEPTION
     Dosage: 20 MCG/24HR, CONT
     Route: 015
     Dates: start: 201701, end: 20181021
  4. MIRENA [Suspect]
     Active Substance: LEVONORGESTREL
     Indication: CONTRACEPTION
  5. MIRENA [Suspect]
     Active Substance: LEVONORGESTREL
     Indication: ENDOMETRIOSIS

REACTIONS (9)
  - Endometriosis [None]
  - Pre-existing condition improved [None]
  - Genital haemorrhage [None]
  - Abdominal pain lower [Not Recovered/Not Resolved]
  - Device expulsion [None]
  - Amenorrhoea [None]
  - Intentional medical device removal by patient [None]
  - Hypomenorrhoea [None]
  - Pelvic adhesions [None]

NARRATIVE: CASE EVENT DATE: 20181020
